FAERS Safety Report 10468539 (Version 2)
Quarter: 2015Q1

REPORT INFORMATION
  Report Type: Report from Study
  Country: BR (occurrence: BR)
  Receive Date: 20140922
  Receipt Date: 20150123
  Transmission Date: 20150720
  Serious: Yes (Other)
  Sender: FDA-Public Use
  Company Number: BR-BIOGENIDEC-2014BI097763

PATIENT
  Age: 34 Year
  Sex: Female

DRUGS (7)
  1. DACTIL [Concomitant]
  2. AVONEX [Suspect]
     Active Substance: INTERFERON BETA-1A
     Indication: MULTIPLE SCLEROSIS
     Route: 030
     Dates: start: 2012
  3. UTROGESTAN [Concomitant]
     Active Substance: PROGESTERONE
  4. AVONEX [Suspect]
     Active Substance: INTERFERON BETA-1A
     Indication: MULTIPLE SCLEROSIS
     Route: 030
     Dates: start: 20131004, end: 20140222
  5. METICORTEN [Concomitant]
     Active Substance: PREDNISONE
     Dates: start: 201401
  6. METICORTEN [Concomitant]
     Active Substance: PREDNISONE
     Dates: start: 20140111
  7. AVONEX [Suspect]
     Active Substance: INTERFERON BETA-1A
     Indication: MULTIPLE SCLEROSIS
     Route: 030
     Dates: start: 20140330, end: 201410

REACTIONS (4)
  - Amniotic fluid volume decreased [Recovered/Resolved]
  - Multiple sclerosis [Unknown]
  - Abortion spontaneous [Recovered/Resolved]
  - Premature separation of placenta [Recovered/Resolved]

NARRATIVE: CASE EVENT DATE: 201312
